FAERS Safety Report 6984749-2 (Version None)
Quarter: 2010Q3

REPORT INFORMATION
  Report Type: 
  Country: None (occurrence: None)
  Receive Date: 20100913
  Receipt Date: 20100828
  Transmission Date: 20110219
  Serious: Yes (Hospitalization)
  Sender: FDA-Public Use
  Company Number: AUR-APL-2010-02174

PATIENT
  Age: 71 Year
  Sex: Female
  Weight: 62 kg

DRUGS (4)
  1. LISINOPRIL [Suspect]
  2. SUNITINIB MALATE [Suspect]
     Indication: RENAL CELL CARCINOMA
     Dosage: ORAL
     Route: 048
     Dates: start: 20100407, end: 20100607
  3. LABETALOL HCL [Suspect]
  4. LORTAB [Suspect]

REACTIONS (8)
  - ABDOMINAL PAIN [None]
  - BONE MARROW FAILURE [None]
  - CONSTIPATION [None]
  - FATIGUE [None]
  - METASTASES TO KIDNEY [None]
  - METASTASES TO LUNG [None]
  - PROTEINURIA [None]
  - VOMITING [None]
